FAERS Safety Report 4651040-9 (Version None)
Quarter: 2005Q2

REPORT INFORMATION
  Report Type: 
  Country: None (occurrence: None)
  Receive Date: 20050429
  Receipt Date: 20050418
  Transmission Date: 20051028
  Serious: Yes (Other)
  Sender: FDA-Public Use
  Company Number: 2005062551

PATIENT
  Age: 19 Year
  Sex: Female
  Weight: 58.9676 kg

DRUGS (2)
  1. DEPO-PROVERA [Suspect]
     Indication: ILL-DEFINED DISORDER
     Dosage: 150 MG (150 MG, 1 ST INJECTION), INTRAMUSCULAR
     Route: 030
     Dates: start: 20040616, end: 20040616
  2. DEPO-PROVERA [Suspect]
     Dosage: 150 MG (150 MG, LAST INJECTION), INTRAMUSCULAR
     Route: 030
     Dates: start: 20040908, end: 20040908

REACTIONS (6)
  - ACNE [None]
  - DEPRESSION [None]
  - HAEMORRHAGE [None]
  - MOOD ALTERED [None]
  - SUICIDAL IDEATION [None]
  - SYNCOPE [None]
